FAERS Safety Report 7469702-7 (Version None)
Quarter: 2011Q2

REPORT INFORMATION
  Report Type: 
  Country: None (occurrence: None)
  Receive Date: 20110510
  Receipt Date: 20110502
  Transmission Date: 20111010
  Serious: Yes (Hospitalization)
  Sender: FDA-Public Use
  Company Number: KR-BRISTOL-MYERS SQUIBB COMPANY-15710213

PATIENT
  Age: 54 Year
  Sex: Female

DRUGS (3)
  1. TRIAMCINOLONE ACETONIDE [Suspect]
     Indication: CERVICOBRACHIAL SYNDROME
     Dosage: INJECTION
     Route: 008
  2. LIDOCAINE [Suspect]
     Dosage: 2% LIDOCAINE
  3. OSMOVIST 190 [Suspect]
     Dosage: 2 0.5 ML INJECTIONS

REACTIONS (1)
  - POSTERIOR REVERSIBLE ENCEPHALOPATHY SYNDROME [None]
